FAERS Safety Report 24228324 (Version 4)
Quarter: 2024Q4

REPORT INFORMATION
  Report Type: Report from Study
  Country: ES (occurrence: ES)
  Receive Date: 20240820
  Receipt Date: 20241007
  Transmission Date: 20250115
  Serious: Yes (Other)
  Sender: ABBVIE
  Company Number: ES-ABBVIE-5882337

PATIENT
  Sex: Male

DRUGS (4)
  1. CARBIDOPA\LEVODOPA [Suspect]
     Active Substance: CARBIDOPA\LEVODOPA
     Indication: Parkinson^s disease
     Route: 050
     Dates: start: 20230720, end: 2024
  2. CARBIDOPA\LEVODOPA [Suspect]
     Active Substance: CARBIDOPA\LEVODOPA
     Dosage: DECREASED THE CONTINUOUS RATE BY 0.1 ML/H AND ALSO THE EXTRA DOSE
     Route: 050
     Dates: start: 2024
  3. LORAZEPAM [Concomitant]
     Active Substance: LORAZEPAM
     Indication: Product used for unknown indication
     Dosage: FREQUENCY TEXT: 0-0-0-1
  4. CARBIDOPA\LEVODOPA [Concomitant]
     Active Substance: CARBIDOPA\LEVODOPA
     Indication: Product used for unknown indication
     Dosage: - FREQUENCY TEXT: 0-0-0-1?SINEMET PLUS/RETARD

REACTIONS (12)
  - Asphyxia [Not Recovered/Not Resolved]
  - Discomfort [Unknown]
  - Therapeutic product effect incomplete [Unknown]
  - Musculoskeletal stiffness [Not Recovered/Not Resolved]
  - Hallucination [Not Recovered/Not Resolved]
  - Unevaluable event [Unknown]
  - Dizziness [Not Recovered/Not Resolved]
  - Mood altered [Not Recovered/Not Resolved]
  - Anxiety [Unknown]
  - Fall [Not Recovered/Not Resolved]
  - Balance disorder [Unknown]
  - Aggression [Not Recovered/Not Resolved]

NARRATIVE: CASE EVENT DATE: 20240101
